FAERS Safety Report 24622491 (Version 2)
Quarter: 2024Q4

REPORT INFORMATION
  Report Type: Spontaneous
  Country: NZ (occurrence: NZ)
  Receive Date: 20241115
  Receipt Date: 20241211
  Transmission Date: 20250115
  Serious: Yes (Hospitalization, Other)
  Sender: BAXTER
  Company Number: NZ-BAXTER-2024BAX027701

PATIENT

DRUGS (3)
  1. TISSEEL [Suspect]
     Active Substance: FIBRINOGEN HUMAN\HUMAN THROMBIN\THROMBIN HUMAN
     Indication: Surgery
     Dosage: (4 ML) AT AN UNSPECIFIED DOSE AND FREQUENCY
     Route: 065
  2. TISSEEL [Suspect]
     Active Substance: FIBRINOGEN HUMAN\HUMAN THROMBIN\THROMBIN HUMAN
     Indication: Surgery
     Dosage: (4 ML) AT AN UNSPECIFIED DOSE AND FREQUENCY
     Route: 065
  3. TISSEEL [Suspect]
     Active Substance: FIBRINOGEN HUMAN\HUMAN THROMBIN\THROMBIN HUMAN
     Indication: Surgery
     Dosage: (4 ML) AT AN UNSPECIFIED DOSE AND FREQUENCY
     Route: 065

REACTIONS (2)
  - Wrong technique in product usage process [Unknown]
  - Post procedural infection [Unknown]

NARRATIVE: CASE EVENT DATE: 20241108
